FAERS Safety Report 7544628-9 (Version None)
Quarter: 2011Q2

REPORT INFORMATION
  Report Type: 
  Country: None (occurrence: None)
  Receive Date: 20110614
  Receipt Date: 20110606
  Transmission Date: 20111010
  Serious: No
  Sender: FDA-Public Use
  Company Number: US-BIOGENIDEC-2010BI029968

PATIENT
  Age: 44 Year
  Sex: Female

DRUGS (1)
  1. TYSABRI [Suspect]
     Indication: MULTIPLE SCLEROSIS
     Route: 042
     Dates: start: 20100121

REACTIONS (10)
  - FALL [None]
  - FIBULA FRACTURE [None]
  - PAIN [None]
  - FRUSTRATION [None]
  - HYPOAESTHESIA [None]
  - ANKLE FRACTURE [None]
  - GAIT DISTURBANCE [None]
  - TEMPERATURE INTOLERANCE [None]
  - BALANCE DISORDER [None]
  - FATIGUE [None]
